FAERS Safety Report 12760516 (Version 2)
Quarter: 2016Q4

REPORT INFORMATION
  Report Type: Spontaneous
  Country: US (occurrence: US)
  Receive Date: 20160919
  Receipt Date: 20161024
  Transmission Date: 20170207
  Serious: Yes (Other)
  Sender: FDA-Public Use
  Company Number: US-INCYTE CORPORATION-2016IN005719

PATIENT
  Age: 61 Year
  Sex: Male
  Weight: 90.7 kg

DRUGS (2)
  1. ASPIRIN                            /00002701/ [Concomitant]
     Active Substance: ASPIRIN
     Indication: PRODUCT USED FOR UNKNOWN INDICATION
     Dosage: 81 MG, QD
     Route: 048
  2. JAKAFI [Suspect]
     Active Substance: RUXOLITINIB
     Indication: POLYCYTHAEMIA VERA
     Dosage: 10 MG, BID
     Route: 048
     Dates: start: 201603

REACTIONS (4)
  - Basal cell carcinoma [Recovered/Resolved]
  - Haemorrhage [Recovered/Resolved]
  - Haematocrit decreased [Unknown]
  - Coagulation time prolonged [Recovered/Resolved]

NARRATIVE: CASE EVENT DATE: 20160902
